FAERS Safety Report 5188806-5 (Version None)
Quarter: 2006Q4

REPORT INFORMATION
  Report Type: 
  Country: None (occurrence: None)
  Receive Date: 20061215
  Receipt Date: 20061207
  Transmission Date: 20070319
  Serious: Yes (Death, Life-Threatening, Hospitalization)
  Sender: FDA-Public Use
  Company Number: HQWYE226121NOV06

PATIENT
  Age: 52 Year
  Sex: Female

DRUGS (5)
  1. PROMETHAZINE HCL [Suspect]
     Dates: start: 20060208
  2. ESOMEPRAZOLE (ESOMEPRAZOLE, ) [Suspect]
     Indication: BILE DUCT CANCER
     Dosage: 40 MG 1X PER 1 DAY, ORAL
     Route: 048
     Dates: start: 20060126
  3. ONDANSETRON HYDROCHLORIDE [Suspect]
     Indication: NAUSEA
     Dosage: ORAL
     Route: 048
     Dates: start: 20060130
  4. ONDANSETRON HYDROCHLORIDE [Suspect]
     Indication: VOMITING
     Dosage: ORAL
     Route: 048
     Dates: start: 20060130
  5. PANCREATIN TRIPLE STRENGTH CAP [Suspect]
     Indication: BILE DUCT CANCER
     Dosage: 9 CAPSULESXPER DAY, ORAL
     Route: 048

REACTIONS (6)
  - DEHYDRATION [None]
  - METASTASES TO LIVER [None]
  - NAUSEA [None]
  - SEPSIS [None]
  - URINARY TRACT INFECTION [None]
  - VOMITING [None]
